FAERS Safety Report 25234072 (Version 1)
Quarter: 2025Q2

REPORT INFORMATION
  Report Type: Spontaneous
  Country: CN (occurrence: CN)
  Receive Date: 20250424
  Receipt Date: 20250424
  Transmission Date: 20250716
  Serious: Yes (Other)
  Sender: MERCK SHARP & DOHME LLC
  Company Number: CN-009507513-2279188

PATIENT
  Sex: Female

DRUGS (2)
  1. PEMBROLIZUMAB [Suspect]
     Active Substance: PEMBROLIZUMAB
     Indication: Cervix carcinoma
     Dosage: COMPLETED FOR 2 CYCLES IN TOTAL
  2. CISPLATIN [Suspect]
     Active Substance: CISPLATIN
     Indication: Cervix carcinoma
     Dosage: COMPLETED 5 CYCLES IN TOTAL

REACTIONS (3)
  - Myelosuppression [Recovering/Resolving]
  - Frequent bowel movements [Recovering/Resolving]
  - Product use in unapproved indication [Unknown]
